FAERS Safety Report 6052748-3 (Version None)
Quarter: 2009Q1

REPORT INFORMATION
  Report Type: 
  Country: None (occurrence: None)
  Receive Date: 20090127
  Receipt Date: 20090121
  Transmission Date: 20090719
  Serious: Yes (Other)
  Sender: FDA-Public Use
  Company Number: FR-BRISTOL-MYERS SQUIBB COMPANY-14121370

PATIENT
  Age: 52 Year
  Sex: Male

DRUGS (3)
  1. REYATAZ [Suspect]
     Indication: HIV INFECTION
     Dates: start: 20080116, end: 20080222
  2. NORVIR [Suspect]
     Indication: HIV INFECTION
     Dates: start: 20080116, end: 20080222
  3. TRUVADA [Suspect]
     Indication: HIV INFECTION
     Dates: start: 20080116, end: 20080222

REACTIONS (4)
  - ALANINE AMINOTRANSFERASE INCREASED [None]
  - ASPARTATE AMINOTRANSFERASE INCREASED [None]
  - CYTOLYTIC HEPATITIS [None]
  - LYMPHOMA [None]
